FAERS Safety Report 11855846 (Version 1)
Quarter: 2015Q4

REPORT INFORMATION
  Report Type: Spontaneous
  Country: US (occurrence: US)
  Receive Date: 20151221
  Receipt Date: 20151221
  Transmission Date: 20160305
  Serious: No
  Sender: FDA-Public Use
  Company Number: US-GLAXOSMITHKLINE-US2015GSK179264

PATIENT
  Sex: Female

DRUGS (1)
  1. TANZEUM [Suspect]
     Active Substance: ALBIGLUTIDE
     Indication: GLUCOSE TOLERANCE IMPAIRED
     Dosage: 50 MG, WE
     Route: 042
     Dates: start: 2015

REACTIONS (5)
  - Off label use [Unknown]
  - Drug dose omission [Unknown]
  - Device use error [Unknown]
  - Product preparation error [Unknown]
  - Device failure [Unknown]
